FAERS Safety Report 5417132-1 (Version None)
Quarter: 2007Q3

REPORT INFORMATION
  Report Type: 
  Country: None (occurrence: None)
  Receive Date: 20070814
  Receipt Date: 20070801
  Transmission Date: 20080115
  Serious: Yes (Other)
  Sender: FDA-Public Use
  Company Number: MPS1-10716

PATIENT
  Age: 1 Year
  Sex: Female
  Weight: 24.2 kg

DRUGS (9)
  1. ALDURAZYME [Suspect]
     Indication: MUCOPOLYSACCHARIDOSIS I
     Dosage: 0.58 MG/KG QWK IV
     Route: 042
     Dates: start: 20070210, end: 20070709
  2. CYCLOSPORINE [Concomitant]
  3. MYCOPHENOLATE MOFETIL [Concomitant]
  4. NORVASC [Concomitant]
  5. ATIVAN [Concomitant]
  6. BACTRIM [Concomitant]
  7. NEUPOGEN [Concomitant]
  8. DIGOXIN [Concomitant]
  9. FLUCONAZOLE [Concomitant]

REACTIONS (4)
  - BLOOD STEM CELL TRANSPLANT FAILURE [None]
  - COMPLICATIONS OF TRANSPLANT SURGERY [None]
  - HYPERBILIRUBINAEMIA [None]
  - MUCOSAL INFLAMMATION [None]
